FAERS Safety Report 23101406 (Version 2)
Quarter: 2025Q1

REPORT INFORMATION
  Report Type: Report from Study
  Country: US (occurrence: US)
  Receive Date: 20231024
  Receipt Date: 20250110
  Transmission Date: 20250409
  Serious: Yes (Other)
  Sender: ABBVIE
  Company Number: US-ABBVIE-5461732

PATIENT
  Age: 67 Year
  Sex: Male

DRUGS (1)
  1. SKYRIZI [Suspect]
     Active Substance: RISANKIZUMAB-RZAA
     Indication: Psoriasis
     Route: 058
     Dates: start: 20210802

REACTIONS (3)
  - Cataract [Recovering/Resolving]
  - Glaucoma [Unknown]
  - Finger repair operation [Recovering/Resolving]

NARRATIVE: CASE EVENT DATE: 20230101
